FAERS Safety Report 23953095 (Version 1)
Quarter: 2024Q2

REPORT INFORMATION
  Report Type: Spontaneous
  Country: CA (occurrence: None)
  Receive Date: 20240608
  Receipt Date: 20240608
  Transmission Date: 20240716
  Serious: Yes (Life-Threatening, Hospitalization)
  Sender: FDA-Public Use
  Company Number: CA-ROCHE-3574136

PATIENT
  Age: 5 Year
  Sex: Female
  Weight: 19 kg

DRUGS (8)
  1. MYCOPHENOLATE MOFETIL [Suspect]
     Active Substance: MYCOPHENOLATE MOFETIL
     Indication: Transplant
     Route: 042
  2. RAPAMUNE [Suspect]
     Active Substance: SIROLIMUS
     Indication: Transplant
     Route: 048
  3. AMOXICILLIN [Concomitant]
     Active Substance: AMOXICILLIN
  4. FAMOTIDINE [Concomitant]
     Active Substance: FAMOTIDINE
  5. FLUCONAZOLE [Concomitant]
     Active Substance: FLUCONAZOLE
  6. FOSCARNET SODIUM [Concomitant]
     Active Substance: FOSCARNET SODIUM
  7. HYDROMORPHONE [Concomitant]
     Active Substance: HYDROMORPHONE
  8. URSODIOL [Concomitant]
     Active Substance: URSODIOL

REACTIONS (4)
  - Anaemia [Unknown]
  - Aplastic anaemia [Unknown]
  - Pyrexia [Unknown]
  - Mucosal inflammation [Unknown]
